FAERS Safety Report 8271215-X (Version None)
Quarter: 2012Q2

REPORT INFORMATION
  Report Type: 
  Country: None (occurrence: None)
  Receive Date: 20120410
  Receipt Date: 20120406
  Transmission Date: 20120825
  Serious: Yes (Life-Threatening, Hospitalization, Other)
  Sender: FDA-Public Use
  Company Number: US-ASTRAZENECA-2010SE37633

PATIENT
  Age: 51 Year
  Sex: Female
  Weight: 59 kg

DRUGS (11)
  1. SEROQUEL [Suspect]
     Indication: BIPOLAR DISORDER
     Dosage: 300 MG BID
     Route: 048
     Dates: start: 20060101
  2. DOXEPIN HCL [Concomitant]
     Indication: SLEEP DISORDER
     Dosage: AT NIGHT
     Route: 048
     Dates: start: 20100101
  3. SEROQUEL [Suspect]
     Indication: BIPOLAR I DISORDER
     Dosage: 300 MG BID
     Route: 048
     Dates: start: 20060101
  4. TEGRETOL [Concomitant]
     Indication: AFFECTIVE DISORDER
     Dosage: ONCE
     Route: 048
     Dates: start: 20100101
  5. SEROQUEL [Suspect]
     Route: 048
  6. SEROQUEL [Suspect]
     Route: 048
  7. SEROQUEL [Suspect]
     Indication: DEPRESSION
     Dosage: 300 MG BID
     Route: 048
     Dates: start: 20060101
  8. OTHER MEDICATIONS [Concomitant]
  9. SEROQUEL [Suspect]
     Route: 048
  10. ATIVAN [Concomitant]
     Indication: ANXIETY
     Dosage: ONCE
     Route: 048
     Dates: start: 20110101
  11. CELEXA [Concomitant]
     Indication: HORMONE LEVEL ABNORMAL
     Dosage: ONCE
     Route: 048
     Dates: start: 20000101

REACTIONS (8)
  - DECREASED APPETITE [None]
  - BULIMIA NERVOSA [None]
  - MANIA [None]
  - SUICIDE ATTEMPT [None]
  - DEPRESSED MOOD [None]
  - INTENTIONAL DRUG MISUSE [None]
  - FEELING ABNORMAL [None]
  - CRYING [None]
